FAERS Safety Report 12316547 (Version 2)
Quarter: 2016Q2

REPORT INFORMATION
  Report Type: Not Available
  Country: FR (occurrence: FR)
  Receive Date: 20160429
  Receipt Date: 20160512
  Transmission Date: 20160815
  Serious: Yes (Hospitalization)
  Sender: FDA-Public Use
  Company Number: FR-BEH-2016061673

PATIENT
  Age: 77 Year
  Sex: Male

DRUGS (15)
  1. PRIVIGEN [Suspect]
     Active Substance: HUMAN IMMUNOGLOBULIN G
  2. ERGYPHILUS CONFORT [Concomitant]
     Active Substance: DIETARY SUPPLEMENT
     Indication: PRODUCT USED FOR UNKNOWN INDICATION
     Dosage: START DATE: ??-SEP-2015; 2-0-2
  3. JOSIR LP [Suspect]
     Active Substance: TAMSULOSIN
     Indication: PRODUCT USED FOR UNKNOWN INDICATION
     Dosage: START DATE: ??-???-2013; 0.4 MG, PROLONGED RELEASE MICROGRANULES IN CAPSULE
     Route: 048
     Dates: end: 20160331
  4. AVODART [Suspect]
     Active Substance: DUTASTERIDE
     Indication: PRODUCT USED FOR UNKNOWN INDICATION
     Dosage: START DATE: ??-???-2013; 0.5 MG
     Route: 048
     Dates: end: 20160331
  5. LOPERAMIDE BASE [Suspect]
     Active Substance: LOPERAMIDE
     Indication: PRODUCT USED FOR UNKNOWN INDICATION
     Dosage: START DATE: ??-???-2014
     Route: 048
     Dates: end: 20160331
  6. SPASFON [Suspect]
     Active Substance: PHLOROGLUCINOL
     Indication: PRODUCT USED FOR UNKNOWN INDICATION
     Dosage: START DATE: ??-???-2013
     Route: 048
     Dates: end: 20160331
  7. PRIVIGEN [Suspect]
     Active Substance: HUMAN IMMUNOGLOBULIN G
     Indication: IMMUNODEFICIENCY
     Route: 042
     Dates: start: 20160303, end: 20160331
  8. PRIVIGEN [Suspect]
     Active Substance: HUMAN IMMUNOGLOBULIN G
  9. ZYDELIG [Suspect]
     Active Substance: IDELALISIB
     Indication: CHRONIC LYMPHOCYTIC LEUKAEMIA
     Dosage: 100 MG; STARTED IN ??-DEC 2014 IN COMBINATION WITH RITUXIMAB; THEN ON ITS OWN SINCE JUN 2015
     Route: 048
     Dates: end: 20160321
  10. NEO-CODION ADULTS [Suspect]
     Active Substance: CODEINE
     Indication: BRONCHITIS CHRONIC
     Route: 048
     Dates: start: 20150101, end: 20160331
  11. PRIVIGEN [Suspect]
     Active Substance: HUMAN IMMUNOGLOBULIN G
  12. ZITHROMAX [Suspect]
     Active Substance: AZITHROMYCIN DIHYDRATE
     Indication: ANTIBIOTIC PROPHYLAXIS
     Dosage: START DATE: ??-OCT 2015; 250 MG; 0.4286 DF (1 DF, 3 IN 1 WEEK)
     Route: 048
     Dates: end: 20160316
  13. NUTRITIONAL SUPPLEMENT [Suspect]
     Active Substance: DIETARY SUPPLEMENT
     Indication: PRODUCT USED FOR UNKNOWN INDICATION
     Dosage: START DATE: ??-SEP-2015
     Route: 048
     Dates: end: 20160331
  14. DESLORATADINE. [Suspect]
     Active Substance: DESLORATADINE
     Indication: PRODUCT USED FOR UNKNOWN INDICATION
     Dosage: START DATE: ??-???-2014
     Route: 048
     Dates: end: 20160331
  15. RITUXIMAB [Suspect]
     Active Substance: RITUXIMAB
     Indication: CHRONIC LYMPHOCYTIC LEUKAEMIA

REACTIONS (9)
  - Rash erythematous [Recovering/Resolving]
  - Papule [Recovering/Resolving]
  - Dermatitis exfoliative [Recovering/Resolving]
  - Skin exfoliation [Recovering/Resolving]
  - Oedema [Recovering/Resolving]
  - Drug reaction with eosinophilia and systemic symptoms [Recovering/Resolving]
  - Eosinophilia [Unknown]
  - Hepatic function abnormal [Unknown]
  - Rash [Recovering/Resolving]

NARRATIVE: CASE EVENT DATE: 201602
